FAERS Safety Report 22395567 (Version 1)
Quarter: 2023Q2

REPORT INFORMATION
  Report Type: Report from Study
  Country: US (occurrence: None)
  Receive Date: 20230601
  Receipt Date: 20230601
  Transmission Date: 20230721
  Serious: Yes (Hospitalization)
  Sender: FDA-Public Use
  Company Number: US-Eisai Medical Research-EC-2023-141197

PATIENT
  Age: 53 Year
  Sex: Female
  Weight: 55.7 kg

DRUGS (17)
  1. LENVIMA [Suspect]
     Active Substance: LENVATINIB
     Indication: Renal cancer
     Route: 048
     Dates: start: 20221128, end: 20230216
  2. LENVIMA [Suspect]
     Active Substance: LENVATINIB
     Dosage: MISSED DOES DUE TO DIARRHEA AND VOMITING
     Route: 048
     Dates: start: 2023, end: 2023
  3. LENVIMA [Suspect]
     Active Substance: LENVATINIB
     Route: 048
     Dates: start: 2023
  4. XGEVA [Concomitant]
     Active Substance: DENOSUMAB
  5. ASPIRIN [Concomitant]
     Active Substance: ASPIRIN
  6. PERCOCET [Concomitant]
     Active Substance: ACETAMINOPHEN\OXYCODONE HYDROCHLORIDE
  7. GABAPENTIN [Concomitant]
     Active Substance: GABAPENTIN
  8. EVEROLIMUS [Concomitant]
     Active Substance: EVEROLIMUS
     Indication: Renal cancer
     Route: 048
     Dates: start: 20221128
  9. IMODIUM [Concomitant]
     Active Substance: LOPERAMIDE HYDROCHLORIDE
  10. KAOPECTATE [Concomitant]
     Active Substance: BISMUTH SUBSALICYLATE
  11. CELECOXIB [Concomitant]
     Active Substance: CELECOXIB
  12. ONDANSETRON [Concomitant]
     Active Substance: ONDANSETRON
  13. TRI-BUFFERED ASPIRIN [Concomitant]
     Active Substance: ASPIRIN
  14. DULCOLAX NOS [Concomitant]
     Active Substance: BISACODYL OR DOCUSATE SODIUM
  15. PAMIDRONATE [Concomitant]
     Active Substance: PAMIDRONATE DISODIUM
  16. XGEVA [Concomitant]
     Active Substance: DENOSUMAB
  17. PHOSPHORUS [Concomitant]
     Active Substance: PHOSPHORUS

REACTIONS (3)
  - Diarrhoea [Unknown]
  - Vomiting [Unknown]
  - Dehydration [Unknown]

NARRATIVE: CASE EVENT DATE: 20220101
